FAERS Safety Report 17157200 (Version 1)
Quarter: 2019Q4

REPORT INFORMATION
  Report Type: Spontaneous
  Country: FR (occurrence: FR)
  Receive Date: 20191216
  Receipt Date: 20191216
  Transmission Date: 20200122
  Serious: Yes (Other)
  Sender: FDA-Public Use
  Company Number: FR-AXELLIA-002857

PATIENT
  Age: 54 Year
  Sex: Male
  Weight: 81 kg

DRUGS (11)
  1. KARDEGIC [Concomitant]
     Active Substance: ASPIRIN DL-LYSINE
     Dosage: STRENGTH;75 MG POWDER FOR ORAL SOLUTION IN SACHET-DOSE
  2. ADVAGRAF [Concomitant]
     Active Substance: TACROLIMUS
  3. LOVENOX [Concomitant]
     Active Substance: ENOXAPARIN SODIUM
     Dosage: STRENGTH:4000 IU ANTI-XA / 0.4 ML, SOLUTION FOR INJECTION IN CARTRIDGE
  4. SOLUPRED [Concomitant]
     Dosage: STRENGTH:5 MG, EFFERVESCENT TABLET
  5. ATORVASTATIN [Concomitant]
     Active Substance: ATORVASTATIN
  6. BISOCE [Concomitant]
     Active Substance: BISOPROLOL
     Dosage: STRENGTH:2,5 MG, SCORED FILM-COATED TABLET
  7. DAPTOMYCIN. [Suspect]
     Active Substance: DAPTOMYCIN
     Indication: OSTEOMYELITIS
     Dates: start: 20190930, end: 20191018
  8. TIENAM [Concomitant]
     Active Substance: CILASTATIN SODIUM\IMIPENEM
     Indication: OSTEOMYELITIS
     Dates: start: 20190930, end: 20191014
  9. MYFORTIC [Suspect]
     Active Substance: MYCOPHENOLATE SODIUM
     Indication: RENAL TRANSPLANT
     Dosage: STRENGTH:360 MG,GASTRO-RESISTANT FILM-COATED TABLET
     Dates: end: 20191016
  10. WELLVONE [Concomitant]
     Active Substance: ATOVAQUONE
     Dosage: STRENTH:750 MG / 5 ML, ORAL SUSPENSION IN SACHET-DOSE
  11. AUGMENTIN [Concomitant]
     Active Substance: AMOXICILLIN\CLAVULANATE POTASSIUM
     Indication: INFECTION
     Dates: start: 20190912, end: 20190930

REACTIONS (1)
  - Neutropenia [Recovered/Resolved]

NARRATIVE: CASE EVENT DATE: 20191014
